FAERS Safety Report 5225405-0 (Version None)
Quarter: 2006Q4

REPORT INFORMATION
  Report Type: 
  Country: None (occurrence: None)
  Receive Date: 20061201
  Receipt Date: 20060926
  Transmission Date: 20070319
  Serious: Yes (Hospitalization)
  Sender: FDA-Public Use
  Company Number: US200609001799

PATIENT
  Age: 28 Year
  Sex: Male

DRUGS (3)
  1. CYMBALTA [Suspect]
     Indication: MAJOR DEPRESSION
     Dosage: 60 MG
     Dates: start: 20060701, end: 20060905
  2. GEODON [Concomitant]
  3. KLONOPIN [Concomitant]

REACTIONS (2)
  - AGITATION [None]
  - INTENTIONAL OVERDOSE [None]
